FAERS Safety Report 20884008 (Version 2)
Quarter: 2022Q2

REPORT INFORMATION
  Report Type: Spontaneous
  Country: FR (occurrence: FR)
  Receive Date: 20220527
  Receipt Date: 20220616
  Transmission Date: 20220720
  Serious: Yes (Death, Hospitalization)
  Sender: FDA-Public Use
  Company Number: None

PATIENT
  Age: 20 Year
  Sex: Male
  Weight: 39 kg

DRUGS (6)
  1. DOXORUBICIN [Suspect]
     Active Substance: DOXORUBICIN
     Indication: Chemotherapy
     Dosage: UNIT DOSE 35 MG,DURATION 1 DAYS
     Route: 042
     Dates: start: 20211116, end: 20211116
  2. ETOPOSIDE [Suspect]
     Active Substance: ETOPOSIDE
     Indication: Chemotherapy
     Dosage: DURATION 2 DAYS
     Route: 042
     Dates: start: 20211116, end: 20211118
  3. METHYLPREDNISOLONE [Suspect]
     Active Substance: METHYLPREDNISOLONE
     Indication: Chemotherapy
     Dosage: DURATION 4 DAYS
     Route: 042
     Dates: start: 20211116, end: 20211119
  4. MESNA [Suspect]
     Active Substance: MESNA
     Indication: Chemotherapy
     Dosage: DURATION 2 DAYS
     Route: 042
     Dates: start: 20211116, end: 20211117
  5. CYCLOPHOSPHAMIDE [Suspect]
     Active Substance: CYCLOPHOSPHAMIDE
     Indication: Chemotherapy
     Dosage: 1262.5 MG,DURATION 1 DAYS
     Route: 042
     Dates: start: 20211116, end: 20211116
  6. PROCARBAZINE [Suspect]
     Active Substance: PROCARBAZINE
     Indication: Chemotherapy
     Dosage: 150 MILLIGRAM DAILY; 150MG/D,DURATION 4 DAYS
     Route: 042
     Dates: start: 20211116, end: 20211119

REACTIONS (4)
  - General physical health deterioration [Not Recovered/Not Resolved]
  - Acute kidney injury [Fatal]
  - Vomiting [Recovering/Resolving]
  - Hypovolaemic shock [Fatal]

NARRATIVE: CASE EVENT DATE: 20211121
